FAERS Safety Report 7748740-0 (Version None)
Quarter: 2011Q3

REPORT INFORMATION
  Report Type: 
  Country: None (occurrence: None)
  Receive Date: 20110914
  Receipt Date: 20110908
  Transmission Date: 20111222
  Serious: No
  Sender: FDA-Public Use
  Company Number: US-BIOGENIDEC-2011BI034494

PATIENT
  Sex: Female

DRUGS (1)
  1. AVONEX [Suspect]
     Indication: MULTIPLE SCLEROSIS
     Route: 030
     Dates: start: 20100505

REACTIONS (5)
  - COUGH [None]
  - BACK PAIN [None]
  - OROPHARYNGEAL PAIN [None]
  - AMNESIA [None]
  - CHILLS [None]
